FAERS Safety Report 7054129-2 (Version None)
Quarter: 2010Q4

REPORT INFORMATION
  Report Type: 
  Country: None (occurrence: None)
  Receive Date: 20101014
  Receipt Date: 20101004
  Transmission Date: 20110411
  Serious: Yes (Hospitalization)
  Sender: FDA-Public Use
  Company Number: TCI2010A04135

PATIENT
  Age: 49 Year
  Sex: Female

DRUGS (1)
  1. ACTOS [Suspect]
     Indication: TYPE 2 DIABETES MELLITUS
     Dosage: 15 MG (15 MG , 1 D)
     Route: 048
     Dates: start: 20080101, end: 20100901

REACTIONS (2)
  - ASCITES [None]
  - PLEURAL EFFUSION [None]
